FAERS Safety Report 9059771 (Version 3)
Quarter: 2013Q4

REPORT INFORMATION
  Report Type: Spontaneous
  Country: US (occurrence: US)
  Receive Date: 20130211
  Receipt Date: 20131010
  Transmission Date: 20140711
  Serious: Yes (Hospitalization, Disabling, Other)
  Sender: FDA-Public Use
  Company Number: US-009507513-1302USA004225

PATIENT
  Sex: Female
  Weight: 77.98 kg

DRUGS (1)
  1. NUVARING [Suspect]
     Indication: CONTRACEPTION
     Dosage: UNK
     Route: 067
     Dates: start: 20091221, end: 20101219

REACTIONS (4)
  - Pulmonary embolism [Unknown]
  - Maternal exposure before pregnancy [Unknown]
  - Post-traumatic neck syndrome [Unknown]
  - Road traffic accident [Unknown]
